FAERS Safety Report 25437397 (Version 2)
Quarter: 2025Q2

REPORT INFORMATION
  Report Type: Spontaneous
  Country: US (occurrence: US)
  Receive Date: 20250616
  Receipt Date: 20250626
  Transmission Date: 20250717
  Serious: Yes (Hospitalization, Other)
  Sender: ROCHE
  Company Number: US-ROCHE-10000310930

PATIENT
  Age: 76 Year
  Sex: Female

DRUGS (6)
  1. ITOVEBI [Suspect]
     Active Substance: INAVOLISIB
     Indication: Breast cancer metastatic
     Route: 065
  2. IBRANCE [Suspect]
     Active Substance: PALBOCICLIB
     Indication: Breast cancer metastatic
     Route: 048
  3. FULVESTRANT [Suspect]
     Active Substance: FULVESTRANT
     Indication: Breast cancer metastatic
     Route: 065
  4. actated Ringer^s bolus [Concomitant]
  5. INSULIN LISPRO [Concomitant]
     Active Substance: INSULIN LISPRO
     Dates: start: 20250506
  6. METFORMIN [Concomitant]
     Active Substance: METFORMIN HYDROCHLORIDE

REACTIONS (8)
  - Hyperglycaemia [Unknown]
  - Bone cancer metastatic [Unknown]
  - Fall [Unknown]
  - Glaucoma [Unknown]
  - Leukopenia [Unknown]
  - Thrombocytopenia [Unknown]
  - Radius fracture [Unknown]
  - Blood creatinine increased [Unknown]
